FAERS Safety Report 5405677-X (Version None)
Quarter: 2007Q3

REPORT INFORMATION
  Report Type: 
  Country: None (occurrence: None)
  Receive Date: 20070806
  Receipt Date: 20070802
  Transmission Date: 20080115
  Serious: Yes (Death, Hospitalization)
  Sender: FDA-Public Use
  Company Number: PHBS2007DK12820

PATIENT
  Age: 91 Year
  Sex: Female

DRUGS (4)
  1. DICLOFENAC SODIUM [Suspect]
     Indication: BACK PAIN
     Dosage: 50 MG, BID
     Dates: start: 20070625, end: 20070709
  2. PAMOL [Concomitant]
     Dosage: 1000 MG, QID
  3. DOLOL [Concomitant]
  4. NEO-MERCAZOLE TAB [Concomitant]
     Dosage: 10 MG, BID

REACTIONS (3)
  - ABDOMINAL DISTENSION [None]
  - GASTRIC ULCER PERFORATION [None]
  - PERITONITIS [None]
